FAERS Safety Report 8952096 (Version 1)
Quarter: 2012Q4

REPORT INFORMATION
  Report Type: 
  Country: US (occurrence: US)
  Receive Date: 20121204
  Receipt Date: 20121204
  Transmission Date: 20130627
  Serious: No
  Sender: FDA-Public Use
  Company Number: US-AMGEN-USASP2012063914

PATIENT
  Age: 65 Year
  Sex: Female
  Weight: 72.56 kg

DRUGS (7)
  1. ENBREL [Suspect]
     Indication: RHEUMATOID ARTHRITIS
     Dosage: 50 mg, qwk
     Route: 058
     Dates: start: 200705
  2. HUMIRA [Concomitant]
     Dosage: 40 mg, UNK
     Dates: start: 2007, end: 200705
  3. METFORMIN [Concomitant]
     Dosage: 500 mg, UNK
     Route: 048
  4. JANUVIA [Concomitant]
     Dosage: 100 mg, UNK
     Route: 048
  5. AVAPRO [Concomitant]
     Dosage: 150 mg, UNK
     Route: 048
  6. LANTUS [Concomitant]
     Dosage: 100 ml, UNK
     Route: 058
  7. CALCIUM [Concomitant]
     Dosage: 500 UNK, UNK
     Route: 048

REACTIONS (2)
  - Pneumonia [Recovered/Resolved]
  - Nasopharyngitis [Recovered/Resolved]
